FAERS Safety Report 11198517 (Version 1)
Quarter: 2015Q2

REPORT INFORMATION
  Report Type: Spontaneous
  Country: US (occurrence: None)
  Receive Date: 20150616
  Receipt Date: 20150616
  Transmission Date: 20150821
  Serious: No
  Sender: FDA-Public Use
  Company Number: US-LHC-2015066

PATIENT

DRUGS (1)
  1. OXYGEN (GENERIC) (OXYGEN) (GAS FOR INHALATION) (VERUM) [Suspect]
     Active Substance: OXYGEN
     Indication: CROHN^S DISEASE
     Route: 055

REACTIONS (3)
  - Off label use [None]
  - Paranasal sinus discomfort [None]
  - Ear congestion [None]
